FAERS Safety Report 16368608 (Version 1)
Quarter: 2019Q2

REPORT INFORMATION
  Report Type: Spontaneous
  Country: PL (occurrence: PL)
  Receive Date: 20190529
  Receipt Date: 20190529
  Transmission Date: 20190711
  Serious: Yes (Death, Hospitalization, Other)
  Sender: FDA-Public Use
  Company Number: PL-BAUSCH-BL-2019-002560

PATIENT
  Age: 59 Year
  Sex: Male

DRUGS (9)
  1. DEXAMETHASONE SALT NOT SPECIFIED [Suspect]
     Active Substance: DEXAMETHASONE
     Indication: WALDENSTROM^S MACROGLOBULINAEMIA
     Dosage: 9X
     Route: 065
  2. DEXAMETHASONE SALT NOT SPECIFIED [Suspect]
     Active Substance: DEXAMETHASONE
     Route: 065
  3. BENDAMUSTINE [Concomitant]
     Active Substance: BENDAMUSTINE
     Indication: WALDENSTROM^S MACROGLOBULINAEMIA
     Dosage: 9X
  4. BENDAMUSTINE [Concomitant]
     Active Substance: BENDAMUSTINE
  5. BORTEZOMIB. [Suspect]
     Active Substance: BORTEZOMIB
     Indication: WALDENSTROM^S MACROGLOBULINAEMIA
     Dosage: CYCLICAL, R-BOR-D REGIMEN, LYOPHILIZED POWDER
     Route: 065
  6. RITUXIMAB. [Suspect]
     Active Substance: RITUXIMAB
     Route: 065
  7. THALIDOMIDE [Concomitant]
     Active Substance: THALIDOMIDE
     Indication: WALDENSTROM^S MACROGLOBULINAEMIA
  8. LEUKERAN [Concomitant]
     Active Substance: CHLORAMBUCIL
     Indication: WALDENSTROM^S MACROGLOBULINAEMIA
     Dates: start: 2015
  9. RITUXIMAB. [Suspect]
     Active Substance: RITUXIMAB
     Indication: WALDENSTROM^S MACROGLOBULINAEMIA
     Route: 065

REACTIONS (11)
  - Abdominal pain upper [Unknown]
  - Enterococcal infection [Not Recovered/Not Resolved]
  - Tenderness [Not Recovered/Not Resolved]
  - Cachexia [Not Recovered/Not Resolved]
  - Thrombocytopenia [Unknown]
  - Anaemia [Unknown]
  - Dysphagia [Not Recovered/Not Resolved]
  - Septic shock [Fatal]
  - Inflammatory marker increased [Fatal]
  - Body temperature increased [Not Recovered/Not Resolved]
  - Product use in unapproved indication [Unknown]

NARRATIVE: CASE EVENT DATE: 2017
